FAERS Safety Report 13194552 (Version 1)
Quarter: 2017Q1

REPORT INFORMATION
  Report Type: Spontaneous
  Country: US (occurrence: US)
  Receive Date: 20170207
  Receipt Date: 20170207
  Transmission Date: 20170428
  Serious: No
  Sender: FDA-Public Use
  Company Number: US-JAZZ-2016-US-003461

PATIENT
  Age: 68 Year
  Sex: Male

DRUGS (2)
  1. PRIALT [Suspect]
     Active Substance: ZICONOTIDE ACETATE
     Indication: PAIN
     Dosage: 0.208 ?G, QH
     Route: 037
  2. PRIALT [Suspect]
     Active Substance: ZICONOTIDE ACETATE
     Dosage: 0.006 ?G, QH
     Route: 037

REACTIONS (6)
  - Stomatitis [Unknown]
  - Vibratory sense increased [Unknown]
  - Dehydration [Unknown]
  - Hallucination, auditory [Unknown]
  - Confusional state [Unknown]
  - Device issue [Unknown]

NARRATIVE: CASE EVENT DATE: 201508
